FAERS Safety Report 9239942 (Version 6)
Quarter: 2014Q4

REPORT INFORMATION
  Report Type: Report from Study
  Country: PT (occurrence: PT)
  Receive Date: 20130418
  Receipt Date: 20141105
  Transmission Date: 20150529
  Serious: Yes (Other)
  Sender: FDA-Public Use
  Company Number: PHHY2013PT034894

PATIENT
  Age: 36 Year
  Sex: Female
  Weight: 65 kg

DRUGS (2)
  1. MERCILON [Interacting]
     Active Substance: DESOGESTREL\ETHINYL ESTRADIOL
  2. GILENYA [Suspect]
     Active Substance: FINGOLIMOD HYDROCHLORIDE
     Indication: MULTIPLE SCLEROSIS
     Dosage: 0.5 MG, QD
     Route: 048
     Dates: start: 20130213, end: 20130404

REACTIONS (4)
  - Normal newborn [Unknown]
  - Malaise [Unknown]
  - Haemorrhage [Unknown]
  - Maternal exposure during pregnancy [Unknown]
